FAERS Safety Report 20930285 (Version 2)
Quarter: 2022Q4

REPORT INFORMATION
  Report Type: Spontaneous
  Country: US (occurrence: US)
  Receive Date: 20220608
  Receipt Date: 20221020
  Transmission Date: 20230112
  Serious: No
  Sender: FDA-Public Use
  Company Number: US-drreddys-SPO/USA/22/0150790

PATIENT
  Age: 56 Year
  Sex: Male
  Weight: 99.9 kg

DRUGS (1)
  1. NICOTINE [Suspect]
     Active Substance: NICOTINE
     Indication: Tobacco user
     Route: 062
     Dates: start: 20220519, end: 20220531

REACTIONS (2)
  - Underdose [Unknown]
  - Product adhesion issue [Unknown]
